FAERS Safety Report 19510911 (Version 2)
Quarter: 2022Q4

REPORT INFORMATION
  Report Type: Spontaneous
  Country: DE (occurrence: DE)
  Receive Date: 20210709
  Receipt Date: 20221026
  Transmission Date: 20230112
  Serious: Yes (Hospitalization)
  Sender: FDA-Public Use
  Company Number: DE-ADRED-05826-01

PATIENT
  Age: 70 Year
  Sex: Male
  Weight: 95 kg

DRUGS (11)
  1. METFORMIN HYDROCHLORIDE [Suspect]
     Active Substance: METFORMIN HYDROCHLORIDE
     Dosage: 1000 MG, UNK, 1000 MG, PAUSED, TABLETS
     Route: 048
  2. APIDRA [Suspect]
     Active Substance: INSULIN GLULISINE
     Dosage: 13-7-8-0, TID, 100 IU/ML, 13-7-8-0, SOLUTION FOR INJECTION/INFUSION
     Route: 058
  3. INSULIN DETEMIR [Suspect]
     Active Substance: INSULIN DETEMIR
     Dosage: 18 IU, QD, 100 IU/ML, 0-0-0-18, SOLUTION FOR INJECTION/INFUSION
     Route: 058
  4. EMPAGLIFLOZIN [Concomitant]
     Active Substance: EMPAGLIFLOZIN
     Dosage: 10 MG, QD,10 MG, 1-0-0-0, TABLETS
     Route: 048
  5. METAMIZOL [Concomitant]
     Active Substance: METAMIZOLE SODIUM
     Dosage: 500 MG, QD, 500MG, 0-0-0-1, TABLETS
     Route: 048
  6. PANTOPRAZOLE [Concomitant]
     Active Substance: PANTOPRAZOLE
     Dosage: 40 MG, QD, 40 MG, 0-0-1-0, TABLETS
     Route: 048
  7. SIMVASTATIN [Concomitant]
     Active Substance: SIMVASTATIN
     Dosage: 10 MG, QD,10 MG, 0-0-3-0, TABLETS
     Route: 048
  8. DALTEPARIN [Concomitant]
     Active Substance: DALTEPARIN
     Dosage: 100 IU/ML, 0-0-0.5-0, 10000 IU/ML, 0-0-0.5-0, SOLUTION FOR INJECTION/INFUSION
     Route: 058
  9. LISINOPRIL [Concomitant]
     Active Substance: LISINOPRIL
     Dosage: 10 MG, QD,10 MG, 1-0-0-0, TABLETS
     Route: 048
  10. METAMIZOLE [Concomitant]
     Active Substance: METAMIZOLE
     Dosage: 500MG, 0-0-0-1, TABLETS
     Route: 048
  11. PANTOPRAZOLE [Concomitant]
     Active Substance: PANTOPRAZOLE
     Dosage: 40 MG, 0-0-1-0, TABLETS
     Route: 048

REACTIONS (10)
  - Pyrexia [Unknown]
  - Erythema [Unknown]
  - Peripheral swelling [Unknown]
  - Decubitus ulcer [Unknown]
  - Decubitus ulcer [Unknown]
  - Peripheral swelling [Unknown]
  - Glycosylated haemoglobin increased [Unknown]
  - Toe amputation [Unknown]
  - Product prescribing error [Unknown]
  - Product monitoring error [Unknown]
